FAERS Safety Report 8126321-7 (Version None)
Quarter: 2012Q1

REPORT INFORMATION
  Report Type: 
  Country: None (occurrence: None)
  Receive Date: 20120209
  Receipt Date: 20120130
  Transmission Date: 20120608
  Serious: Yes (Hospitalization, Other)
  Sender: FDA-Public Use
  Company Number: US-ELI_LILLY_AND_COMPANY-US201108009459

PATIENT
  Sex: Female

DRUGS (3)
  1. FORTEO [Suspect]
     Dosage: 20 UG, QD
  2. FORTEO [Suspect]
     Indication: OSTEOPOROSIS
     Dosage: 20 UG DAILY
     Route: 058
  3. FORTEO [Suspect]
     Dosage: 20 UG, QD

REACTIONS (5)
  - KNEE ARTHROPLASTY [None]
  - DEVICE RELATED INFECTION [None]
  - HIP ARTHROPLASTY [None]
  - JOINT DISLOCATION [None]
  - PNEUMONIA [None]
